FAERS Safety Report 5432971-9 (Version None)
Quarter: 2007Q3

REPORT INFORMATION
  Report Type: 
  Country: None (occurrence: None)
  Receive Date: 20070831
  Receipt Date: 20070828
  Transmission Date: 20080115
  Serious: Yes (Disabling)
  Sender: FDA-Public Use
  Company Number: PHRM2007FR02085

PATIENT
  Age: 55 Year
  Sex: Male

DRUGS (1)
  1. ZOMETA [Suspect]
     Indication: METASTASES TO BONE
     Dosage: 1 DF, BID
     Route: 042
     Dates: start: 20010101, end: 20060101

REACTIONS (1)
  - OSTEITIS [None]
